FAERS Safety Report 25847821 (Version 1)
Quarter: 2025Q3

REPORT INFORMATION
  Report Type: Spontaneous
  Country: US (occurrence: None)
  Receive Date: 20250925
  Receipt Date: 20250925
  Transmission Date: 20251020
  Serious: Yes (Other)
  Sender: FDA-CTU
  Company Number: None

PATIENT
  Age: 71 Year
  Sex: Male

DRUGS (3)
  1. MYCOPHENOLIC ACID [Suspect]
     Active Substance: MYCOPHENOLIC ACID
     Indication: Liver transplant
     Route: 048
     Dates: start: 20250830
  2. TACROLIMUS [Concomitant]
     Active Substance: TACROLIMUS
  3. TACROLIMUS A [Concomitant]

REACTIONS (1)
  - Fall [None]

NARRATIVE: CASE EVENT DATE: 20250921
